FAERS Safety Report 9289431 (Version 2)
Quarter: 2013Q2

REPORT INFORMATION
  Report Type: Spontaneous
  Country: US (occurrence: US)
  Receive Date: 20130514
  Receipt Date: 20130607
  Transmission Date: 20140414
  Serious: No
  Sender: FDA-Public Use
  Company Number: US-009507513-1305USA008502

PATIENT
  Sex: Female

DRUGS (4)
  1. JANUMET [Suspect]
     Indication: BLOOD GLUCOSE FLUCTUATION
     Dosage: UNK
     Route: 048
     Dates: end: 2012
  2. LUNESTA [Concomitant]
  3. CRESTOR [Concomitant]
  4. FOLIC ACID [Concomitant]

REACTIONS (2)
  - Dementia Alzheimer^s type [Not Recovered/Not Resolved]
  - Drug ineffective [Unknown]
